FAERS Safety Report 9744565 (Version 1)
Quarter: 2013Q4

REPORT INFORMATION
  Report Type: Spontaneous
  Country: US (occurrence: US)
  Receive Date: 20131210
  Receipt Date: 20131210
  Transmission Date: 20140711
  Serious: Yes (Other)
  Sender: FDA-Public Use
  Company Number: US-BAXTER-2013BAX048563

PATIENT
  Age: 66 Year
  Sex: Female
  Weight: 65.2 kg

DRUGS (5)
  1. LIDOCAINE HYDROCHLORIDE AND 5% DEXTROSE INJECTION, USP [Suspect]
     Indication: INDUCTION OF ANAESTHESIA
     Route: 042
  2. MIDAZOLAM [Suspect]
     Indication: PREMEDICATION
     Route: 065
  3. FENTANYL [Suspect]
     Indication: INDUCTION OF ANAESTHESIA
     Route: 042
  4. PROPOFOL [Suspect]
     Indication: INDUCTION OF ANAESTHESIA
     Route: 042
  5. ROCURONIUM [Suspect]
     Indication: INDUCTION OF ANAESTHESIA
     Route: 042

REACTIONS (2)
  - Therapeutic response delayed [Recovered/Resolved]
  - Joint dislocation [Recovered/Resolved]
